FAERS Safety Report 7568854-8 (Version None)
Quarter: 2011Q2

REPORT INFORMATION
  Report Type: 
  Country: None (occurrence: None)
  Receive Date: 20110623
  Receipt Date: 20110614
  Transmission Date: 20111010
  Serious: Yes (Other)
  Sender: FDA-Public Use
  Company Number: US-ASTRAZENECA-2011SE36587

PATIENT
  Age: 39 Year
  Sex: Male
  Weight: 99.3 kg

DRUGS (9)
  1. ASPIRIN [Concomitant]
     Indication: CARDIAC DISORDER
     Dates: start: 19910101
  2. NEXIUM [Suspect]
     Indication: ABDOMINAL PAIN
     Route: 048
     Dates: start: 20100901, end: 20110101
  3. LIPITOR [Suspect]
     Indication: HYPERCHOLESTEROLAEMIA
     Route: 048
     Dates: start: 19910101
  4. PREVACID [Suspect]
     Indication: ABDOMINAL PAIN
     Route: 048
     Dates: start: 20100401, end: 20100901
  5. BENAZEPRIL HYDROCHLORIDE [Concomitant]
     Indication: CARDIAC DISORDER
  6. NEXIUM [Suspect]
     Route: 048
     Dates: start: 20110101
  7. ATENOLOL [Concomitant]
     Route: 048
  8. FISH OIL [Suspect]
     Route: 048
  9. ZETIA [Concomitant]
     Indication: LIPOPROTEIN (A) ABNORMAL
     Route: 048

REACTIONS (3)
  - BLOOD TRIGLYCERIDES INCREASED [None]
  - DRUG INEFFECTIVE [None]
  - ABDOMINAL PAIN [None]
